FAERS Safety Report 14401021 (Version 2)
Quarter: 2018Q1

REPORT INFORMATION
  Report Type: Spontaneous
  Country: JP (occurrence: JP)
  Receive Date: 20180117
  Receipt Date: 20180219
  Transmission Date: 20180509
  Serious: Yes (Other)
  Sender: FDA-Public Use
  Company Number: JP-CIPLA LTD.-2018JP01368

PATIENT

DRUGS (4)
  1. EPIRUBICIN [Suspect]
     Active Substance: EPIRUBICIN
     Indication: OSTEITIS DEFORMANS
     Dosage: UNK, 2 WEEKS ON/2 WEEKS OFF
     Route: 065
  2. PACLITAXEL. [Suspect]
     Active Substance: PACLITAXEL
     Indication: OSTEITIS DEFORMANS
     Dosage: UNK, 2 WEEKS ON/2 WEEKS OFF
     Route: 065
  3. DOCETAXEL. [Suspect]
     Active Substance: DOCETAXEL
     Indication: OSTEITIS DEFORMANS
     Dosage: 25 MG/M2, WEEKLY
     Route: 065
  4. CISPLATIN. [Suspect]
     Active Substance: CISPLATIN
     Indication: OSTEITIS DEFORMANS
     Dosage: UNK, 2 WEEKS ON/2 WEEKS OFF
     Route: 065

REACTIONS (3)
  - Toxicity to various agents [Unknown]
  - Haematotoxicity [Unknown]
  - Metastases to lymph nodes [Unknown]
